FAERS Safety Report 21189723 (Version 1)
Quarter: 2022Q3

REPORT INFORMATION
  Report Type: Spontaneous
  Country: US (occurrence: None)
  Receive Date: 20220808
  Receipt Date: 20220808
  Transmission Date: 20221026
  Serious: Yes (Disabling, Other)
  Sender: FDA-Public Use
  Company Number: None

PATIENT
  Age: 65 Year
  Sex: Female
  Weight: 72 kg

DRUGS (21)
  1. ATORVASTATIN [Suspect]
     Active Substance: ATORVASTATIN
     Indication: Product used for unknown indication
     Route: 048
  2. BACLOFEN [Concomitant]
     Active Substance: BACLOFEN
  3. DICLOFENAC [Concomitant]
     Active Substance: DICLOFENAC
  4. ULTRAM [Concomitant]
     Active Substance: TRAMADOL HYDROCHLORIDE
  5. FOSAMAX [Concomitant]
     Active Substance: ALENDRONATE SODIUM
  6. walking canes [Concomitant]
  7. medical grade compression thigh-high stockings [Concomitant]
  8. prescription eyeglasses [Concomitant]
  9. bedside railing [Concomitant]
  10. bathtub safety rails [Concomitant]
  11. VITAMINS [Concomitant]
     Active Substance: VITAMINS
  12. FAMOTIDINE [Concomitant]
     Active Substance: FAMOTIDINE
  13. CALCIUM AND VITAMIN D [Concomitant]
  14. HERBALS\TURMERIC [Concomitant]
     Active Substance: HERBALS\TURMERIC
  15. Ginger capsule [Concomitant]
  16. OMEGA 3 [Concomitant]
     Active Substance: CAPSAICIN
  17. Boswellia supplement [Concomitant]
  18. COENZYME Q10 [Concomitant]
     Active Substance: DIETARY SUPPLEMENT\UBIDECARENONE
  19. raw garlic cloves [Concomitant]
  20. moisturizing eye drops [Concomitant]
  21. Ocuvite eye vitamin [Concomitant]

REACTIONS (16)
  - Synovial fluid analysis abnormal [None]
  - Epistaxis [None]
  - Blister [None]
  - Alopecia [None]
  - Photosensitivity reaction [None]
  - Vitreous floaters [None]
  - Ocular hyperaemia [None]
  - Muscle swelling [None]
  - Muscle spasms [None]
  - Rash [None]
  - Bone atrophy [None]
  - Glycosylated haemoglobin increased [None]
  - Contraindicated product administered [None]
  - Knee deformity [None]
  - Skin weeping [None]
  - Pain [None]

NARRATIVE: CASE EVENT DATE: 20210801
